FAERS Safety Report 6029857-8 (Version None)
Quarter: 2009Q1

REPORT INFORMATION
  Report Type: 
  Country: None (occurrence: None)
  Receive Date: 20090106
  Receipt Date: 20090106
  Transmission Date: 20090719
  Serious: Yes (Hospitalization, Other)
  Sender: FDA-Public Use
  Company Number: None

PATIENT
  Age: 58 Year
  Sex: Female

DRUGS (1)
  1. PREDNISONE TAB [Suspect]
     Indication: POLYMYALGIA RHEUMATICA
     Dosage: STARTING DOSE 15 MG/DAILY FOR 1 MONTH THEN DECREASED
     Dates: start: 20080105

REACTIONS (7)
  - ACTIVITIES OF DAILY LIVING IMPAIRED [None]
  - ARTHRALGIA [None]
  - ARTHRITIS [None]
  - DECREASED ACTIVITY [None]
  - GAIT DISTURBANCE [None]
  - OSTEONECROSIS [None]
  - WHEELCHAIR USER [None]
